FAERS Safety Report 5689314-5 (Version None)
Quarter: 2008Q1

REPORT INFORMATION
  Report Type: 
  Country: None (occurrence: None)
  Receive Date: 20080331
  Receipt Date: 20080324
  Transmission Date: 20080703
  Serious: Yes (Hospitalization, Other)
  Sender: FDA-Public Use
  Company Number: US-ELI_LILLY_AND_COMPANY-US200801004306

PATIENT
  Sex: Male

DRUGS (11)
  1. FORTEO [Suspect]
     Indication: OSTEOPOROSIS
     Dosage: UNK, UNK
     Dates: start: 20070501, end: 20070629
  2. FORTEO [Suspect]
     Dosage: UNK, MONTHLY (1/M)
     Dates: start: 20071001
  3. COUMADIN [Concomitant]
     Dosage: 2.5 MG, DAILY (1/D)
  4. TRENTAL [Concomitant]
     Dosage: 400 MG, 3/D
  5. AMBIEN [Concomitant]
     Dosage: 12.5 MG, EACH EVENING
  6. ATIVAN [Concomitant]
     Dosage: 10 MG, AS NEEDED
  7. ATIVAN [Concomitant]
     Dosage: 1 MG, AS NEEDED
  8. COLACE [Concomitant]
     Dosage: 100 MG, DAILY (1/D)
  9. CALCIUM [Concomitant]
     Dosage: 600 MG, 3/D
  10. VITAMIN B COMPLEX CAP [Concomitant]
     Dosage: UNK, DAILY (1/D)
  11. CITRACAL [Concomitant]
     Dosage: UNK, DAILY (1/D)

REACTIONS (6)
  - BONE DISORDER [None]
  - GINGIVAL PAIN [None]
  - ILL-DEFINED DISORDER [None]
  - MYASTHENIA GRAVIS [None]
  - PNEUMONIA [None]
  - RAYNAUD'S PHENOMENON [None]
